FAERS Safety Report 11734472 (Version 1)
Quarter: 2015Q4

REPORT INFORMATION
  Report Type: Report from Study
  Country: US (occurrence: US)
  Receive Date: 20151113
  Receipt Date: 20151113
  Transmission Date: 20160304
  Serious: No
  Sender: FDA-Public Use
  Company Number: PHEH2015US022624

PATIENT
  Sex: Male

DRUGS (2)
  1. TASIGNA [Suspect]
     Active Substance: NILOTINIB
     Indication: PARKINSON^S DISEASE
     Route: 065
  2. TASIGNA [Suspect]
     Active Substance: NILOTINIB
     Indication: DEMENTIA WITH LEWY BODIES

REACTIONS (1)
  - Off label use [Unknown]
